FAERS Safety Report 9330780 (Version 1)
Quarter: 2013Q2

REPORT INFORMATION
  Report Type: Spontaneous
  Country: JP (occurrence: JP)
  Receive Date: 20130605
  Receipt Date: 20130605
  Transmission Date: 20140414
  Serious: Yes (Hospitalization, Other)
  Sender: FDA-Public Use
  Company Number: JP-ROCHE-611530

PATIENT
  Age: 87 Year
  Sex: Male

DRUGS (5)
  1. MABTHERA [Suspect]
     Indication: B-CELL LYMPHOMA
     Route: 065
  2. CYCLOPHOSPHAMIDE [Concomitant]
     Indication: B-CELL LYMPHOMA
  3. DOXORUBICIN [Concomitant]
     Indication: B-CELL LYMPHOMA
  4. VINCRISTINE SULPHATE [Concomitant]
     Indication: B-CELL LYMPHOMA
  5. PREDNISOLONE [Concomitant]
     Indication: B-CELL LYMPHOMA

REACTIONS (2)
  - Leukoencephalopathy [Recovered/Resolved]
  - Posterior reversible encephalopathy syndrome [Unknown]
